FAERS Safety Report 17536593 (Version 2)
Quarter: 2020Q2

REPORT INFORMATION
  Report Type: Spontaneous
  Country: JP (occurrence: JP)
  Receive Date: 20200313
  Receipt Date: 20200406
  Transmission Date: 20200713
  Serious: Yes (Hospitalization, Other)
  Sender: FDA-Public Use
  Company Number: JP-ALVOGEN-2020-ALVOGEN-107829

PATIENT
  Age: 64 Year
  Sex: Female

DRUGS (8)
  1. PEGINTERFERON ALFA-2B [Suspect]
     Active Substance: PEGINTERFERON ALFA-2B
     Indication: HEPATITIS C VIRUS TEST POSITIVE
     Dosage: LIQUID INFUSION, FOR ABOUT TWO MONTHS
     Route: 058
     Dates: start: 200901, end: 200903
  2. AMLODIPINE BESILATE [Suspect]
     Active Substance: AMLODIPINE BESYLATE
     Indication: HYPERTENSION
     Dosage: FOR ABOUT 11 MONTHS
     Route: 048
  3. PEGINTERFERON ALFA-2B [Suspect]
     Active Substance: PEGINTERFERON ALFA-2B
     Indication: HEPATITIS CHRONIC ACTIVE
     Route: 058
     Dates: start: 200901, end: 200903
  4. ATENOLOL. [Suspect]
     Active Substance: ATENOLOL
     Indication: HYPERTENSION
     Dosage: FOR ABOUT 4 MONTHS
     Route: 048
  5. RIBAVIRIN. [Suspect]
     Active Substance: RIBAVIRIN
     Indication: HEPATITIS CHRONIC ACTIVE
     Route: 058
     Dates: start: 200901, end: 200903
  6. URSODEOXYCHOLIC ACID [Concomitant]
     Active Substance: URSODIOL
  7. CANDESARTAN CILEXETIL. [Suspect]
     Active Substance: CANDESARTAN CILEXETIL
     Indication: HYPERTENSION
     Dosage: FOR ABOUT 8 MONTHS
     Route: 048
     Dates: start: 2010, end: 201102
  8. RIBAVIRIN. [Suspect]
     Active Substance: RIBAVIRIN
     Indication: HEPATITIS C VIRUS TEST POSITIVE
     Dosage: FOR ABOUT TWO MONTHS
     Route: 048
     Dates: start: 200901, end: 200903

REACTIONS (5)
  - Headache [Recovering/Resolving]
  - Therapeutic product cross-reactivity [Recovered/Resolved]
  - Fatigue [Recovered/Resolved]
  - Fixed eruption [Recovered/Resolved]
  - Drug ineffective [Unknown]

NARRATIVE: CASE EVENT DATE: 2009
